FAERS Safety Report 6230184-4 (Version None)
Quarter: 2009Q2

REPORT INFORMATION
  Report Type: 
  Country: None (occurrence: None)
  Receive Date: 20090615
  Receipt Date: 20090611
  Transmission Date: 20091009
  Serious: No
  Sender: FDA-Public Use
  Company Number: US-B.I. PHARMACEUTICALS,INC./RIDGEFIELD-2009-BP-07182BP

PATIENT
  Sex: Male

DRUGS (5)
  1. FLOMAX [Suspect]
     Indication: URINARY RETENTION
     Dosage: .4MG
     Route: 048
     Dates: start: 20090608, end: 20090609
  2. COZAAR [Concomitant]
     Indication: HYPERTENSION
  3. PRANDIN [Concomitant]
     Indication: TYPE 2 DIABETES MELLITUS
  4. HYDROCHLOROTHIAZIDE [Concomitant]
     Indication: HYPERTENSION
  5. SIMVASTATIN [Concomitant]
     Indication: BLOOD CHOLESTEROL INCREASED

REACTIONS (2)
  - BLOOD GLUCOSE INCREASED [None]
  - URINARY INCONTINENCE [None]
